FAERS Safety Report 24638729 (Version 1)
Quarter: 2024Q4

REPORT INFORMATION
  Report Type: Spontaneous
  Country: US (occurrence: US)
  Receive Date: 20241119
  Receipt Date: 20241119
  Transmission Date: 20250115
  Serious: Yes (Death, Other)
  Sender: PURDUE
  Company Number: US-PURDUE PHARMA-USA-2024-0313355

PATIENT
  Age: 26 Year
  Sex: Female

DRUGS (2)
  1. OXYCODONE HYDROCHLORIDE [Suspect]
     Active Substance: OXYCODONE HYDROCHLORIDE
     Indication: Pain
     Dosage: UNK
     Route: 065
  2. CAFFEINE [Suspect]
     Active Substance: CAFFEINE
     Indication: Pain
     Dosage: UNK
     Route: 065

REACTIONS (3)
  - Victim of homicide [Fatal]
  - Asphyxia [Fatal]
  - Drug screen positive [Unknown]

NARRATIVE: CASE EVENT DATE: 20160101
